FAERS Safety Report 5064727-3 (Version None)
Quarter: 2006Q3

REPORT INFORMATION
  Report Type: 
  Country: None (occurrence: None)
  Receive Date: 20060728
  Receipt Date: 20060720
  Transmission Date: 20061208
  Serious: Yes (Other)
  Sender: FDA-Public Use
  Company Number: CA-ROCHE-456759

PATIENT
  Sex: Female

DRUGS (2)
  1. ACCUTANE [Suspect]
     Indication: DRUG USE FOR UNKNOWN INDICATION
     Route: 048
     Dates: start: 20060115
  2. DIANE [Concomitant]
     Dosage: DRUG REPORTED AS DIANE 35.
     Route: 048
     Dates: start: 20040615

REACTIONS (1)
  - BLOOD CREATINE PHOSPHOKINASE INCREASED [None]
